FAERS Safety Report 17325633 (Version 1)
Quarter: 2020Q1

REPORT INFORMATION
  Report Type: Spontaneous
  Country: US (occurrence: US)
  Receive Date: 20200127
  Receipt Date: 20200127
  Transmission Date: 20200409
  Serious: Yes (Other)
  Sender: FDA-Public Use
  Company Number: US-REGENERON PHARMACEUTICALS, INC.-2019-17865

PATIENT

DRUGS (2)
  1. EYLEA [Suspect]
     Active Substance: AFLIBERCEPT
     Indication: RETINAL VEIN OCCLUSION
  2. EYLEA [Suspect]
     Active Substance: AFLIBERCEPT
     Indication: MACULAR OEDEMA
     Dosage: 1MG X 2 UNITS PER EYE EVERY 4-6 WEEKS
     Route: 031
     Dates: start: 20180831, end: 20181008

REACTIONS (6)
  - Ill-defined disorder [Unknown]
  - Conjunctival haemorrhage [Unknown]
  - Oropharyngeal pain [Unknown]
  - Refusal of treatment by patient [Unknown]
  - Eye pain [Unknown]
  - Eye disorder [Unknown]

NARRATIVE: CASE EVENT DATE: 2018
